FAERS Safety Report 8976350 (Version 1)
Quarter: 2012Q4

REPORT INFORMATION
  Report Type: 
  Country: US (occurrence: US)
  Receive Date: 20121220
  Receipt Date: 20121220
  Transmission Date: 20130627
  Serious: Yes (Other)
  Sender: FDA-Public Use
  Company Number: PHHY2012US117156

PATIENT
  Age: 85 Year
  Sex: Male

DRUGS (2)
  1. BUFFERIN REGULAR STRENGTH [Suspect]
     Indication: HEADACHE
     Dosage: UNK UKN, UNK
     Route: 048
     Dates: start: 1972
  2. BUFFERIN REGULAR STRENGTH [Suspect]
     Dosage: 1 DF, QD
     Route: 048
     Dates: start: 1982

REACTIONS (1)
  - Angina pectoris [Recovered/Resolved]
